FAERS Safety Report 18125336 (Version 3)
Quarter: 2020Q4

REPORT INFORMATION
  Report Type: Spontaneous
  Country: US (occurrence: US)
  Receive Date: 20200807
  Receipt Date: 20201007
  Transmission Date: 20210113
  Serious: No
  Sender: FDA-Public Use
  Company Number: US-TEVA-2020-US-1813445

PATIENT
  Age: 59 Year
  Sex: Male

DRUGS (1)
  1. QVAR REDIHALER [Suspect]
     Active Substance: BECLOMETHASONE DIPROPIONATE
     Route: 065

REACTIONS (5)
  - Product taste abnormal [Unknown]
  - Product substitution issue [Unknown]
  - Device issue [Unknown]
  - Expired product administered [Unknown]
  - Expired device used [Unknown]
